FAERS Safety Report 6916105-7 (Version None)
Quarter: 2010Q3

REPORT INFORMATION
  Report Type: 
  Country: None (occurrence: None)
  Receive Date: 20100810
  Receipt Date: 20100729
  Transmission Date: 20110219
  Serious: No
  Sender: FDA-Public Use
  Company Number: US-BIOGENIDEC-2010BI026579

PATIENT
  Age: 47 Year
  Sex: Male

DRUGS (6)
  1. TYSABRI [Suspect]
     Indication: MULTIPLE SCLEROSIS
     Route: 042
     Dates: start: 20091203
  2. ZOLOFT [Concomitant]
     Indication: DEPRESSION
  3. ZOLOFT [Concomitant]
     Route: 048
     Dates: start: 20100426
  4. WELLBUTRIN [Concomitant]
     Indication: DEPRESSION
  5. PROZAC [Concomitant]
     Indication: DEPRESSION
  6. MULTIVITAMINE [Concomitant]

REACTIONS (4)
  - GAIT DISTURBANCE [None]
  - MULTIPLE SCLEROSIS [None]
  - NAUSEA [None]
  - VOMITING [None]
